FAERS Safety Report 7160718-7 (Version None)
Quarter: 2010Q4

REPORT INFORMATION
  Report Type: 
  Country: None (occurrence: None)
  Receive Date: 20101214
  Receipt Date: 20091216
  Transmission Date: 20110411
  Serious: Yes (Other)
  Sender: FDA-Public Use
  Company Number: US-AMGEN-QUU376221

PATIENT

DRUGS (13)
  1. ENBREL [Suspect]
     Indication: PSORIASIS
     Dosage: 50 MG, 2 TIMES/WK
     Dates: start: 20060501
  2. ESOMEPRAZOLE MAGNESIUM [Concomitant]
     Dosage: UNK UNK, UNK
  3. RANITIDINE HYDROCHLORIDE [Concomitant]
     Dosage: UNK UNK, UNK
  4. SUCRALFATE [Concomitant]
     Dosage: UNK UNK, UNK
  5. UNSPECIFIED MEDICATION [Concomitant]
     Dosage: UNK UNK, UNK
  6. TAMSULOSIN HCL [Concomitant]
     Dosage: UNK UNK, UNK
  7. FEXOFENADINE HCL [Concomitant]
  8. CLONAZEPAM [Concomitant]
  9. ROPINIROLE HYDROCHLORIDE [Concomitant]
  10. LAMOTRIGINE [Concomitant]
  11. MOMETASONE FUROATE MONOHYDRATE [Concomitant]
  12. QUETIAPINE FUMARATE [Concomitant]
  13. PREGABALIN [Concomitant]

REACTIONS (3)
  - BASAL CELL CARCINOMA [None]
  - PSORIASIS [None]
  - SQUAMOUS CELL CARCINOMA [None]
